FAERS Safety Report 8347376-0 (Version None)
Quarter: 2012Q2

REPORT INFORMATION
  Report Type: 
  Country: None (occurrence: None)
  Receive Date: 20120509
  Receipt Date: 20120426
  Transmission Date: 20120825
  Serious: Yes (Other)
  Sender: FDA-Public Use
  Company Number: IT-ROCHE-1066444

PATIENT
  Sex: Female
  Weight: 69 kg

DRUGS (2)
  1. BLINDED ALISPORIVIR [Suspect]
     Indication: HEPATITIS C
  2. PEGASYS [Suspect]
     Indication: HEPATITIS C
     Dates: start: 20111118

REACTIONS (1)
  - HYPOTENSION [None]
